FAERS Safety Report 7897154-1 (Version None)
Quarter: 2011Q4

REPORT INFORMATION
  Report Type: 
  Country: None (occurrence: None)
  Receive Date: 20111107
  Receipt Date: 20111025
  Transmission Date: 20120403
  Serious: Yes (Other)
  Sender: FDA-Public Use
  Company Number: FR-CELGENEUS-056-C5013-11102969

PATIENT
  Sex: Female
  Weight: 52 kg

DRUGS (9)
  1. DUPHALAC [Concomitant]
     Indication: CONSTIPATION
     Dosage: 30 MILLILITER
     Route: 048
     Dates: start: 19310325
  2. CLASTOBAN [Concomitant]
     Indication: PROPHYLAXIS
     Dosage: 1600 MILLIGRAM
     Route: 048
     Dates: start: 20100121
  3. MELPHALAN HYDROCHLORIDE [Suspect]
     Indication: MULTIPLE MYELOMA
     Dosage: 12 MILLIGRAM
     Route: 065
     Dates: start: 20100121, end: 20110515
  4. EPREX [Concomitant]
     Dosage: 40000 IU (INTERNATIONAL UNIT)
     Route: 058
     Dates: start: 20100322
  5. PREDNISONE [Suspect]
     Indication: MULTIPLE MYELOMA
     Dosage: 110 MILLIGRAM
     Route: 065
     Dates: start: 20100121, end: 20110515
  6. LEVOTHYROXINE SODIUM [Concomitant]
     Indication: HYPOTHYROIDISM
     Dosage: 100 MILLIGRAM
     Route: 048
     Dates: start: 20090131
  7. TRAMADOL HCL [Concomitant]
     Dosage: 100 MILLIGRAM
     Route: 048
     Dates: start: 20100105
  8. ALLOPURINOL [Concomitant]
     Dosage: 100 MILLIGRAM
     Route: 048
     Dates: start: 20090218
  9. THALIDOMIDE [Suspect]
     Indication: MULTIPLE MYELOMA
     Dosage: 100 MILLIGRAM
     Route: 048
     Dates: start: 20100121, end: 20110622

REACTIONS (1)
  - REFRACTORY ANAEMIA WITH RINGED SIDEROBLASTS [None]
